FAERS Safety Report 4661378-7 (Version None)
Quarter: 2005Q2

REPORT INFORMATION
  Report Type: 
  Country: None (occurrence: None)
  Receive Date: 20050512
  Receipt Date: 20041213
  Transmission Date: 20051028
  Serious: Yes (Hospitalization)
  Sender: FDA-Public Use
  Company Number: 05-05-0784

PATIENT

DRUGS (1)
  1. TRAMADOL [Suspect]

REACTIONS (1)
  - NEONATAL RESPIRATORY DISTRESS SYNDROME [None]
